FAERS Safety Report 6636714-2 (Version None)
Quarter: 2010Q1

REPORT INFORMATION
  Report Type: 
  Country: None (occurrence: None)
  Receive Date: 20100316
  Receipt Date: 20100305
  Transmission Date: 20100710
  Serious: Yes (Hospitalization)
  Sender: FDA-Public Use
  Company Number: B0637651A

PATIENT
  Age: 83 Year
  Sex: Female

DRUGS (1)
  1. VALTREX [Suspect]
     Indication: DRUG USE FOR UNKNOWN INDICATION
     Dosage: 3000MG PER DAY
     Route: 048
     Dates: start: 20100210

REACTIONS (1)
  - DEPRESSED LEVEL OF CONSCIOUSNESS [None]
